FAERS Safety Report 5603022-8 (Version None)
Quarter: 2008Q1

REPORT INFORMATION
  Report Type: 
  Country: None (occurrence: None)
  Receive Date: 20080125
  Receipt Date: 20080121
  Transmission Date: 20080703
  Serious: Yes (Hospitalization)
  Sender: FDA-Public Use
  Company Number: BE-MERCK-0712BEL00020

PATIENT
  Age: 76 Year
  Sex: Female

DRUGS (9)
  1. COSOPT [Suspect]
     Indication: GLAUCOMA
     Route: 047
     Dates: start: 20051013, end: 20070915
  2. COSOPT [Suspect]
     Route: 047
     Dates: start: 20071207, end: 20071210
  3. BETOPTIC [Concomitant]
     Indication: GLAUCOMA
     Route: 047
     Dates: start: 20070916, end: 20071206
  4. BETOPTIC [Concomitant]
     Route: 047
     Dates: start: 20071211
  5. COVERSYL (PERINDOPRIL ARGININE) [Concomitant]
     Indication: CARDIAC DISORDER
     Route: 048
     Dates: start: 20050101
  6. BISOPROLOL [Concomitant]
     Indication: CARDIAC DISORDER
     Route: 048
  7. ACTONEL [Concomitant]
     Indication: OSTEOPOROSIS
     Route: 048
  8. GLUCOSAMINE [Concomitant]
     Route: 048
  9. ASAFLOW [Concomitant]
     Indication: PROPHYLAXIS
     Route: 048

REACTIONS (6)
  - CATARACT [None]
  - ERYTHEMA OF EYELID [None]
  - EXOPHTHALMOS [None]
  - EYE ALLERGY [None]
  - EYE PAIN [None]
  - EYELID OEDEMA [None]
